FAERS Safety Report 23392495 (Version 2)
Quarter: 2024Q1

REPORT INFORMATION
  Report Type: Report from Study
  Country: US (occurrence: US)
  Receive Date: 20240111
  Receipt Date: 20240112
  Transmission Date: 20240410
  Serious: Yes (Hospitalization, Other)
  Sender: FDA-Public Use
  Company Number: US-UNITED THERAPEUTICS-UNT-2023-033040

PATIENT
  Age: 74 Year
  Sex: Female
  Weight: 67.12 kg

DRUGS (29)
  1. TREPROSTINIL [Suspect]
     Active Substance: TREPROSTINIL
     Indication: Pulmonary arterial hypertension
     Dosage: 2.5 MG, TID
     Route: 048
  2. TREPROSTINIL [Suspect]
     Active Substance: TREPROSTINIL
     Dosage: UNK
     Route: 048
     Dates: start: 20211022
  3. ORENITRAM [Suspect]
     Active Substance: TREPROSTINIL
     Indication: Pulmonary arterial hypertension
     Dosage: UNK
     Route: 048
  4. HEPARIN [Suspect]
     Active Substance: HEPARIN SODIUM
     Indication: Product used for unknown indication
     Dosage: UNK
     Route: 041
     Dates: start: 20231105
  5. ACETAMINOPHEN [Concomitant]
     Active Substance: ACETAMINOPHEN
     Indication: Pain
     Dosage: 500 MG Q6H PRN
     Route: 048
  6. ACYCLOVIR [Concomitant]
     Active Substance: ACYCLOVIR
     Indication: Product used for unknown indication
     Dosage: 400 MG (1 TABLET), QD
     Route: 065
  7. ALBUTEROL [Concomitant]
     Active Substance: ALBUTEROL
     Indication: Product used for unknown indication
     Dosage: 108 MCG/PUFF; USE 2 PUFF (216 MCG) Q6H PRN
  8. BROVANA [Concomitant]
     Active Substance: ARFORMOTEROL TARTRATE
     Indication: Product used for unknown indication
     Dosage: 15 MCG/2ML; INHALE THE CONTENT OF ONE AMPULE, BID
  9. ALLEGRA [Concomitant]
     Active Substance: FEXOFENADINE HYDROCHLORIDE
     Indication: Product used for unknown indication
     Dosage: 180 MG (1 TABLET) DAILY PRN
     Route: 048
  10. FLUOCINOLONE ACETONIDE [Concomitant]
     Active Substance: FLUOCINOLONE ACETONIDE
     Indication: Product used for unknown indication
     Dosage: APPLY NO MORE THAN 1 OUNCE TO SCALP, QD
     Route: 061
     Dates: start: 20221111
  11. FLONASE [Concomitant]
     Active Substance: FLUTICASONE PROPIONATE
     Indication: Product used for unknown indication
     Dosage: 50 MCG/ACT; USE 1 SPRAY IN EACH NOSTRIL DAILY PRN
     Route: 045
  12. GABAPENTIN [Concomitant]
     Active Substance: GABAPENTIN
     Indication: Product used for unknown indication
     Dosage: 600 MG (2 CAPSULE OF 300 MG), QHS (NIGHLTY)
     Route: 048
  13. KORLYM [Concomitant]
     Active Substance: MIFEPRISTONE
     Indication: Product used for unknown indication
     Dosage: 300 MG (1 TABLET), QD
     Route: 048
  14. LATANOPROST [Concomitant]
     Active Substance: LATANOPROST
     Indication: Product used for unknown indication
     Dosage: PLACE 1 DROP INTO BOTH EYES
  15. LEVOTHYROXINE SODIUM [Concomitant]
     Active Substance: LEVOTHYROXINE SODIUM
     Indication: Product used for unknown indication
     Dosage: 175 MCG, QD
     Route: 048
  16. OPSUMIT [Concomitant]
     Active Substance: MACITENTAN
     Indication: Product used for unknown indication
     Dosage: 10 MG (1 TABLET), QD
     Route: 048
  17. POLYETHYLENE GLYCOL [Concomitant]
     Active Substance: POLYETHYLENE GLYCOL
     Indication: Product used for unknown indication
     Dosage: 17 GRAM DAILY PRN
     Route: 048
     Dates: start: 20211020
  18. CALCIUM CARBONATE [Concomitant]
     Active Substance: CALCIUM CARBONATE
     Indication: Product used for unknown indication
     Dosage: 500 MG, TID
     Route: 048
  19. PRAVACHOL [Concomitant]
     Active Substance: PRAVASTATIN SODIUM
     Indication: Product used for unknown indication
     Dosage: 40 MG (1 TABLET), QHS
     Route: 065
     Dates: start: 20230605
  20. ADCIRCA [Concomitant]
     Active Substance: TADALAFIL
     Indication: Pulmonary arterial hypertension
     Dosage: 40 MG (2 TABLETS OF 20 MG), QD
     Route: 048
     Dates: start: 20220303
  21. KENALOG [Concomitant]
     Active Substance: TRIAMCINOLONE ACETONIDE
     Indication: Product used for unknown indication
     Dosage: APPLY EXTERNALLY TO THE AFFECTED AREA TWICE DAILY SPARINGLY PRN
     Route: 061
     Dates: start: 20220909
  22. ATROPINE\DIPHENOXYLATE [Concomitant]
     Active Substance: ATROPINE\DIPHENOXYLATE
     Indication: Product used for unknown indication
     Route: 065
  23. OMEPRAZOLE [Concomitant]
     Active Substance: OMEPRAZOLE
     Indication: Product used for unknown indication
     Route: 065
  24. POTASSIUM CHLORIDE [Concomitant]
     Active Substance: POTASSIUM CHLORIDE
     Indication: Product used for unknown indication
     Dosage: 10 MEQ; FREQUENCY UNKNOWN
     Route: 065
  25. POTASSIUM CHLORIDE [Concomitant]
     Active Substance: POTASSIUM CHLORIDE
     Dosage: 2 TABLETS OF 20 MEQ BID
     Route: 048
     Dates: start: 20231111
  26. CHOLECALCIFEROL [Concomitant]
     Active Substance: CHOLECALCIFEROL
     Indication: Product used for unknown indication
     Route: 065
  27. CHOLESTYRAMINE LIGHT [Concomitant]
     Active Substance: CHOLESTYRAMINE
     Indication: Product used for unknown indication
     Route: 065
  28. GUAIFENESIN [Concomitant]
     Active Substance: GUAIFENESIN
     Indication: Product used for unknown indication
     Route: 065
  29. ASPIRIN [Concomitant]
     Active Substance: ASPIRIN
     Indication: Product used for unknown indication
     Dosage: UNK
     Route: 065
     Dates: end: 202311

REACTIONS (38)
  - Diarrhoea [Recovered/Resolved]
  - Atrial fibrillation [Recovered/Resolved]
  - Upper gastrointestinal haemorrhage [Unknown]
  - Acute respiratory failure [Recovered/Resolved]
  - Pulmonary hypertension [Not Recovered/Not Resolved]
  - Chronic obstructive pulmonary disease [Recovered/Resolved]
  - Exophthalmos [Unknown]
  - Hypokalaemia [Recovered/Resolved]
  - Acute right ventricular failure [Unknown]
  - Altered state of consciousness [Unknown]
  - Gastrointestinal arteriovenous malformation [Unknown]
  - Gastric ulcer [Unknown]
  - Essential hypertension [Not Recovered/Not Resolved]
  - Herpes simplex [Unknown]
  - Arthralgia [Unknown]
  - Pain in extremity [Unknown]
  - Lymphoedema [Unknown]
  - Dermatophytosis of nail [Unknown]
  - Dyspnoea [Not Recovered/Not Resolved]
  - Gravitational oedema [Unknown]
  - Pulmonary mass [Unknown]
  - Obesity [Recovering/Resolving]
  - Aortic aneurysm [Unknown]
  - Lymphadenopathy mediastinal [Unknown]
  - Electrocardiogram abnormal [Unknown]
  - Temperature intolerance [Unknown]
  - Pituitary-dependent Cushing^s syndrome [Unknown]
  - Eustachian tube dysfunction [Unknown]
  - Respiratory gas exchange disorder [Unknown]
  - Dyspnoea exertional [Unknown]
  - Oxygen saturation decreased [Unknown]
  - PCO2 increased [Unknown]
  - Red blood cell count decreased [Unknown]
  - Haemoglobin decreased [Unknown]
  - Haematocrit decreased [Unknown]
  - Red cell distribution width increased [Unknown]
  - Large intestine polyp [Unknown]
  - Blood pressure decreased [Unknown]

NARRATIVE: CASE EVENT DATE: 20231101
